FAERS Safety Report 5894483-8 (Version None)
Quarter: 2008Q3

REPORT INFORMATION
  Report Type: 
  Country: None (occurrence: None)
  Receive Date: 20080922
  Receipt Date: 20080821
  Transmission Date: 20090109
  Serious: Yes (Life-Threatening, Disabling, Other)
  Sender: FDA-Public Use
  Company Number: DSA_31657_2008

PATIENT
  Sex: Female
  Weight: 108.8633 kg

DRUGS (9)
  1. DILTIAZEM [Suspect]
     Indication: ATRIAL FIBRILLATION
     Dosage: ONE CAPSULE ONCE
     Dates: start: 20071217, end: 20071217
  2. DILTIAZEM HYDROCHLORIDE [Concomitant]
     Indication: ATRIAL FIBRILLATION
     Dosage: 120 MG BID (120 MG MG EVERY 12 HOURS)
     Dates: start: 20060831, end: 20071216
  3. TAURINE [Concomitant]
  4. COUMADIN [Concomitant]
  5. VITAMIN B-COMPLEX /00282501/ [Concomitant]
  6. ASCORBIC ACID [Concomitant]
  7. NATURAL VITAMIN E /00110501/ [Concomitant]
  8. MSM WITH GLUCOSAMINE /05460301/ [Concomitant]
  9. CHONDROITIN [Concomitant]

REACTIONS (22)
  - ABASIA [None]
  - ABDOMINAL DISTENSION [None]
  - AMNESIA [None]
  - ARTHRALGIA [None]
  - ASTHENIA [None]
  - BACK PAIN [None]
  - BALANCE DISORDER [None]
  - CARDIAC ARREST [None]
  - EYE DISCHARGE [None]
  - FALL [None]
  - FATIGUE [None]
  - GAIT DISTURBANCE [None]
  - HEADACHE [None]
  - INCONTINENCE [None]
  - MUSCLE ATROPHY [None]
  - MYOCARDIAL INFARCTION [None]
  - OEDEMA PERIPHERAL [None]
  - PAIN [None]
  - PAIN IN EXTREMITY [None]
  - THIRST [None]
  - TREMOR [None]
  - VISION BLURRED [None]
